FAERS Safety Report 7224152-3 (Version None)
Quarter: 2011Q1

REPORT INFORMATION
  Report Type: 
  Country: None (occurrence: None)
  Receive Date: 20110113
  Receipt Date: 20110110
  Transmission Date: 20110831
  Serious: No
  Sender: FDA-Public Use
  Company Number: US-BIOGENIDEC-2011BI001187

PATIENT
  Age: 41 Year
  Sex: Female

DRUGS (2)
  1. AVONEX [Suspect]
     Indication: MULTIPLE SCLEROSIS
     Route: 030
     Dates: start: 20110109
  2. AVONEX [Suspect]
     Route: 030
     Dates: start: 20100301, end: 20100701

REACTIONS (5)
  - ASTHENIA [None]
  - HYPERHIDROSIS [None]
  - ALOPECIA [None]
  - DIZZINESS [None]
  - FEELING COLD [None]
